FAERS Safety Report 5872578-2 (Version None)
Quarter: 2008Q3

REPORT INFORMATION
  Report Type: 
  Country: None (occurrence: None)
  Receive Date: 20080905
  Receipt Date: 20080825
  Transmission Date: 20090109
  Serious: Yes (Death)
  Sender: FDA-Public Use
  Company Number: US-WYE-H05714608

PATIENT
  Age: 46 Year
  Sex: Male
  Weight: 77.18 kg

DRUGS (1)
  1. RELISTOR [Suspect]
     Indication: CONSTIPATION
     Dosage: 12 MG EVERY 1 TOT
     Route: 058

REACTIONS (1)
  - DEATH [None]
